FAERS Safety Report 25708747 (Version 4)
Quarter: 2025Q4

REPORT INFORMATION
  Report Type: Spontaneous
  Country: US (occurrence: US)
  Receive Date: 20250821
  Receipt Date: 20251013
  Transmission Date: 20260118
  Serious: No
  Sender: LUPIN
  Company Number: US-LUPIN PHARMACEUTICALS INC.-2025-07460

PATIENT
  Age: 61 Year
  Weight: 68 kg

DRUGS (2)
  1. BUPROPION HYDROCHLORIDE [Suspect]
     Active Substance: BUPROPION HYDROCHLORIDE
     Indication: Attention deficit hyperactivity disorder
     Dosage: UNK
     Route: 065
  2. ZOLOFT [Concomitant]
     Active Substance: SERTRALINE HYDROCHLORIDE
     Indication: Product used for unknown indication
     Dosage: UNK
     Route: 065

REACTIONS (17)
  - Product container issue [Unknown]
  - Off label use [Unknown]
  - Product dispensing error [Unknown]
  - Wrong product administered [Unknown]
  - Product appearance confusion [Unknown]
  - Dizziness [Unknown]
  - Dry mouth [Unknown]
  - Contusion [Unknown]
  - Vision blurred [Unknown]
  - Diarrhoea [Unknown]
  - Muscle spasms [Unknown]
  - Disturbance in attention [Unknown]
  - Migraine [Unknown]
  - Hyperhidrosis [Unknown]
  - Initial insomnia [Unknown]
  - Irritability [Unknown]
  - Anxiety [Unknown]
